FAERS Safety Report 16500062 (Version 1)
Quarter: 2019Q2

REPORT INFORMATION
  Report Type: Spontaneous
  Country: US (occurrence: US)
  Receive Date: 20190520
  Receipt Date: 20190520
  Transmission Date: 20190711
  Serious: Yes (Hospitalization)
  Sender: FDA-Public Use
  Company Number: None

PATIENT
  Age: 79 Year
  Sex: Male
  Weight: 75.75 kg

DRUGS (3)
  1. MYCOPHENOLIC ACID 360 MG [Suspect]
     Active Substance: MYCOPHENOLIC ACID
     Route: 048
  2. ROSUVASTATIN 20 [Concomitant]
  3. TACROLIMUS 0.5 MG [Suspect]
     Active Substance: TACROLIMUS
     Route: 048

REACTIONS (1)
  - Pneumonia [None]

NARRATIVE: CASE EVENT DATE: 20190516
